FAERS Safety Report 22196917 (Version 2)
Quarter: 2023Q2

REPORT INFORMATION
  Report Type: Spontaneous
  Country: US (occurrence: US)
  Receive Date: 20230411
  Receipt Date: 20230418
  Transmission Date: 20230722
  Serious: Yes (Hospitalization, Other)
  Sender: FDA-Public Use
  Company Number: US-JUBILANT CADISTA PHARMACEUTICALS-2023JUB00148

PATIENT
  Age: 29 Year
  Sex: Male
  Weight: 81.9 kg

DRUGS (15)
  1. METHYLPREDNISOLONE [Suspect]
     Active Substance: METHYLPREDNISOLONE
     Indication: Evidence based treatment
     Dosage: 40 MG, EVERY 12 HOUR
     Route: 042
     Dates: start: 20210930, end: 20211002
  2. METHYLPREDNISOLONE [Suspect]
     Active Substance: METHYLPREDNISOLONE
     Indication: Angioedema
  3. PREDNISONE [Suspect]
     Active Substance: PREDNISONE
     Indication: Angioedema
     Dosage: 40 MG
     Dates: start: 20211003, end: 20211004
  4. PREDNISONE [Suspect]
     Active Substance: PREDNISONE
     Indication: Kaposi^s sarcoma
  5. DEXAMETHASONE SODIUM PHOSPHATE [Suspect]
     Active Substance: DEXAMETHASONE SODIUM PHOSPHATE
     Indication: Peritonsillar abscess
     Dosage: 10 MG, 1 TOTAL, AT 0500
     Route: 042
     Dates: start: 20210911, end: 20210911
  6. DEXAMETHASONE SODIUM PHOSPHATE [Suspect]
     Active Substance: DEXAMETHASONE SODIUM PHOSPHATE
     Indication: Tonsillar exudate
  7. SOLU-MEDROL [Suspect]
     Active Substance: METHYLPREDNISOLONE SODIUM SUCCINATE
     Indication: Evidence based treatment
     Dosage: 125 MG, 1 TOTAL
     Route: 042
     Dates: start: 20211014, end: 20211014
  8. EPINEPHRINE [Concomitant]
     Active Substance: EPINEPHRINE
     Indication: Evidence based treatment
     Dosage: UNK
     Route: 058
  9. EPINEPHRINE [Concomitant]
     Active Substance: EPINEPHRINE
     Dosage: 1 {DF} TOTAL
     Route: 030
     Dates: start: 2021
  10. DIPHENHYDRAMINE [Concomitant]
     Active Substance: DIPHENHYDRAMINE
     Indication: Evidence based treatment
     Dosage: 1 {DF} TOTAL
     Dates: start: 2021
  11. FAMOTIDINE [Concomitant]
     Active Substance: FAMOTIDINE
     Indication: Evidence based treatment
     Dosage: 1 {DF} TOTAL
     Dates: start: 2021
  12. CLINDAMYCIN [Concomitant]
     Active Substance: CLINDAMYCIN
     Indication: Peritonsillar abscess
     Dosage: UNK
     Dates: start: 202111
  13. CLINDAMYCIN [Concomitant]
     Active Substance: CLINDAMYCIN
     Indication: Tonsillar exudate
  14. SULFAMETHOXAZOLE AND TRIMETHOPRIM [Concomitant]
     Active Substance: SULFAMETHOXAZOLE\TRIMETHOPRIM
     Indication: Antibiotic prophylaxis
     Dosage: UNK
     Dates: start: 2021
  15. BICTEGRAVIR\EMTRICITABINE\TENOFOVIR ALAFENAMIDE [Concomitant]
     Active Substance: BICTEGRAVIR\EMTRICITABINE\TENOFOVIR ALAFENAMIDE
     Indication: HIV infection
     Dosage: UNK
     Dates: start: 2021

REACTIONS (3)
  - Condition aggravated [Unknown]
  - Kaposi^s sarcoma [Unknown]
  - Metastasis [Unknown]
